FAERS Safety Report 16345127 (Version 2)
Quarter: 2019Q3

REPORT INFORMATION
  Report Type: Spontaneous
  Country: US (occurrence: US)
  Receive Date: 20190523
  Receipt Date: 20190718
  Transmission Date: 20191004
  Serious: No
  Sender: FDA-Public Use
  Company Number: US-ASTRAZENECA-2019SE64282

PATIENT
  Age: 65 Year
  Sex: Female
  Weight: 127 kg

DRUGS (1)
  1. SYMBICORT [Suspect]
     Active Substance: BUDESONIDE\FORMOTEROL FUMARATE DIHYDRATE
     Indication: CHRONIC OBSTRUCTIVE PULMONARY DISEASE
     Dosage: 160/4.5 MCG,2 PUFFS TWICE DAILY
     Route: 055

REACTIONS (6)
  - Circumstance or information capable of leading to medication error [Unknown]
  - Device issue [Unknown]
  - Device malfunction [Unknown]
  - Candida infection [Recovered/Resolved]
  - Intentional device misuse [Unknown]
  - Off label use of device [Unknown]

NARRATIVE: CASE EVENT DATE: 2019
